FAERS Safety Report 5542441-5 (Version None)
Quarter: 2007Q4

REPORT INFORMATION
  Report Type: 
  Country: None (occurrence: None)
  Receive Date: 20071210
  Receipt Date: 20071128
  Transmission Date: 20080405
  Serious: Yes (Hospitalization)
  Sender: FDA-Public Use
  Company Number: FI-BAYER-200717400GPV

PATIENT
  Age: 58 Year
  Sex: Female

DRUGS (2)
  1. MIRENA [Suspect]
     Indication: VAGINAL HAEMORRHAGE
     Route: 015
     Dates: start: 20040401, end: 20071004
  2. ESTROGEL [Suspect]
     Indication: HORMONE REPLACEMENT THERAPY
     Route: 062
     Dates: end: 20071001

REACTIONS (2)
  - ENDOMETRIAL CANCER STAGE I [None]
  - VAGINAL HAEMORRHAGE [None]
